FAERS Safety Report 4907944-2 (Version None)
Quarter: 2006Q1

REPORT INFORMATION
  Report Type: 
  Country: None (occurrence: None)
  Receive Date: 20060210
  Receipt Date: 20051003
  Transmission Date: 20060701
  Serious: Yes (Other)
  Sender: FDA-Public Use
  Company Number: JP-ABBOTT-05P-087-0312699-00

PATIENT
  Age: 40 Year
  Sex: Male

DRUGS (6)
  1. CEFZON [Suspect]
     Indication: LARYNGOPHARYNGITIS
     Route: 048
     Dates: start: 20050920, end: 20050923
  2. CEFZON [Suspect]
     Indication: PHARYNGITIS
  3. PELEX [Suspect]
     Indication: LARYNGOPHARYNGITIS
     Route: 048
     Dates: start: 20050920, end: 20050923
  4. PELEX [Suspect]
  5. PARACETAMOL [Suspect]
     Indication: LARYNGOPHARYNGITIS
     Route: 048
     Dates: start: 20050920, end: 20050923
  6. PARACETAMOL [Suspect]
     Indication: PHARYNGITIS

REACTIONS (1)
  - ERYTHEMA MULTIFORME [None]
